FAERS Safety Report 14283787 (Version 3)
Quarter: 2018Q2

REPORT INFORMATION
  Report Type: Report from Study
  Country: FR (occurrence: FR)
  Receive Date: 20171213
  Receipt Date: 20180430
  Transmission Date: 20180711
  Serious: Yes (Hospitalization, Other)
  Sender: FDA-Public Use
  Company Number: FR-BAXTER-2017BAX042223

PATIENT
  Age: 6 Year
  Sex: Male

DRUGS (12)
  1. ENDOXAN 1000 MG, POUDRE POUR SOLUTIONINJECTABLE [Suspect]
     Active Substance: CYCLOPHOSPHAMIDE
     Indication: ACUTE LYMPHOCYTIC LEUKAEMIA
     Dosage: 740 MG, UNK
     Route: 042
     Dates: start: 20170731, end: 20170731
  2. PEGASPARGASE [Suspect]
     Active Substance: PEGASPARGASE
     Dosage: 1875 IU, 1X/DAY: QD
     Route: 042
     Dates: start: 20170706, end: 20170814
  3. DEXAMETHASONE. [Suspect]
     Active Substance: DEXAMETHASONE
     Indication: ACUTE LYMPHOCYTIC LEUKAEMIA
     Dosage: 8 MG, 1X/DAY: QD
     Route: 048
     Dates: start: 20170703, end: 20170723
  4. CYTARABINE. [Suspect]
     Active Substance: CYTARABINE
     Dosage: 55 MG, UNK
     Route: 042
     Dates: start: 20170802, end: 20170812
  5. METHOTREXATE. [Suspect]
     Active Substance: METHOTREXATE
     Indication: ACUTE LYMPHOCYTIC LEUKAEMIA
     Dosage: 12MG,UNK
     Route: 037
     Dates: start: 20170706, end: 20170821
  6. VINCRISTINE [Suspect]
     Active Substance: VINCRISTINE
     Indication: ACUTE LYMPHOCYTIC LEUKAEMIA
     Dosage: 1.1 MG, UNK
     Route: 042
     Dates: start: 20170703, end: 20170821
  7. ADRIAMYCIN [Suspect]
     Active Substance: DOXORUBICIN HYDROCHLORIDE
     Indication: ACUTE LYMPHOCYTIC LEUKAEMIA
     Dosage: 18.4, UNK
     Route: 042
     Dates: start: 20170703, end: 20170717
  8. HYDROCORTISONE. [Suspect]
     Active Substance: HYDROCORTISONE
     Indication: ACUTE LYMPHOCYTIC LEUKAEMIA
     Dosage: 15 MG, UNK
     Route: 037
     Dates: start: 20170706, end: 20170821
  9. CYTARABINE. [Suspect]
     Active Substance: CYTARABINE
     Indication: ACUTE LYMPHOCYTIC LEUKAEMIA
     Dosage: 30 MG, UNK
     Route: 037
     Dates: start: 20170706, end: 20170821
  10. THIOGUANINE [Suspect]
     Active Substance: THIOGUANINE
     Indication: ACUTE LYMPHOCYTIC LEUKAEMIA
     Dosage: 40 MG, UNK
     Route: 048
     Dates: start: 20170731, end: 20170813
  11. PEGASPARGASE [Suspect]
     Active Substance: PEGASPARGASE
     Indication: ACUTE LYMPHOCYTIC LEUKAEMIA
     Dosage: 3750 IU, UNK
     Route: 048
     Dates: start: 20170703, end: 20170723
  12. DOXORUBICIN [Suspect]
     Active Substance: DOXORUBICIN
     Indication: ACUTE LYMPHOCYTIC LEUKAEMIA
     Route: 042

REACTIONS (3)
  - Optic nerve disorder [Recovered/Resolved with Sequelae]
  - Sinusitis [Recovered/Resolved with Sequelae]
  - Periorbital infection [Recovered/Resolved with Sequelae]

NARRATIVE: CASE EVENT DATE: 20170830
